FAERS Safety Report 7403603-5 (Version None)
Quarter: 2011Q2

REPORT INFORMATION
  Report Type: 
  Country: None (occurrence: None)
  Receive Date: 20110401
  Receipt Date: 20110321
  Transmission Date: 20111010
  Serious: Yes (Death, Hospitalization)
  Sender: FDA-Public Use
  Company Number: 1000005637

PATIENT
  Age: 83 Year
  Sex: Male
  Weight: 74 kg

DRUGS (9)
  1. INSULIN [Concomitant]
  2. ANTICHOLINERGICS [Concomitant]
  3. SYMPATHOMIMETICS [Concomitant]
  4. CHLORPROMAZINE [Concomitant]
  5. STEROIDS [Concomitant]
  6. FUROSEMIDE [Concomitant]
  7. CITALOPRAM (CITALOPRAM HYDROBROMIDE) (TABLETS) [Suspect]
     Indication: DEPRESSION
     Dosage: 20 MG (20 MG, 1 IN  1 D), ORAL
     Route: 048
     Dates: start: 20090319, end: 20090322
  8. BISOPROLOL FUMARATE [Concomitant]
  9. ACETYLSALICYLIC ACID SRT [Concomitant]

REACTIONS (3)
  - HEPATOTOXICITY [None]
  - GENERAL PHYSICAL HEALTH DETERIORATION [None]
  - BRONCHOPNEUMONIA [None]
